FAERS Safety Report 7577142-5 (Version None)
Quarter: 2011Q2

REPORT INFORMATION
  Report Type: 
  Country: None (occurrence: None)
  Receive Date: 20110628
  Receipt Date: 20110128
  Transmission Date: 20111010
  Serious: Yes (Hospitalization, Other)
  Sender: FDA-Public Use
  Company Number: US-BAYER-201040674NA

PATIENT
  Age: 31 Year
  Sex: Female
  Weight: 90.703 kg

DRUGS (13)
  1. MOTRIN [Concomitant]
  2. YAZ [Suspect]
     Indication: CONTRACEPTION
  3. ZOLOFT [Concomitant]
  4. YASMIN [Suspect]
     Indication: ACNE
  5. DROSPIRENONE AND ETHINYL ESTRADIOL [Suspect]
     Indication: CONTRACEPTION
  6. MULTI-VITAMIN [Concomitant]
  7. YAZ [Suspect]
     Indication: ACNE
     Dosage: UNK
     Dates: start: 20060101, end: 20090101
  8. CELEBREX [Concomitant]
  9. DROSPIRENONE AND ETHINYL ESTRADIOL [Suspect]
     Indication: ACNE
     Dosage: UNK
     Dates: start: 20060101, end: 20090101
  10. ACETAMINOPHEN [Concomitant]
  11. FLEXERIL [Concomitant]
  12. VICODIN [Concomitant]
  13. LYRICA [Concomitant]

REACTIONS (6)
  - GALLBLADDER DISORDER [None]
  - PELVIC PAIN [None]
  - CHOLELITHIASIS [None]
  - CHOLESTEROSIS [None]
  - CHOLECYSTITIS CHRONIC [None]
  - OVARIAN CYST [None]
